FAERS Safety Report 7100308-5 (Version None)
Quarter: 2010Q4

REPORT INFORMATION
  Report Type: 
  Country: None (occurrence: None)
  Receive Date: 20101112
  Receipt Date: 20101104
  Transmission Date: 20110411
  Serious: Yes (Hospitalization)
  Sender: FDA-Public Use
  Company Number: FR-GILEAD-2010-0033249

PATIENT
  Sex: Female

DRUGS (7)
  1. VIREAD [Suspect]
     Indication: HEPATITIS B
     Route: 048
     Dates: start: 20100501
  2. CELLCEPT [Suspect]
     Route: 048
     Dates: start: 19970101
  3. ZEFFIX [Suspect]
     Route: 048
  4. PROTELOS [Suspect]
     Route: 048
  5. IDEOS [Suspect]
     Route: 048
  6. ORACILLINE [Suspect]
     Route: 048
  7. ALLOPURINOL [Suspect]
     Route: 048

REACTIONS (1)
  - COLITIS ULCERATIVE [None]
